FAERS Safety Report 7571024-0 (Version None)
Quarter: 2011Q2

REPORT INFORMATION
  Report Type: 
  Country: None (occurrence: None)
  Receive Date: 20110624
  Receipt Date: 20110610
  Transmission Date: 20111010
  Serious: Yes (Hospitalization, Disabling)
  Sender: FDA-Public Use
  Company Number: GB-ROCHE-782056

PATIENT
  Age: 73 Year
  Sex: Female
  Weight: 88.7 kg

DRUGS (7)
  1. GLICLAZIDE [Concomitant]
     Route: 048
  2. OMEPRAZOLE [Concomitant]
     Route: 048
  3. TRAMADOL HCL [Concomitant]
     Route: 048
  4. TOCILIZUMAB [Suspect]
     Indication: RHEUMATOID ARTHRITIS
     Route: 042
     Dates: start: 20110407
  5. ACETAMINOPHEN [Concomitant]
     Route: 048
  6. PREDNISOLONE [Concomitant]
     Route: 048
  7. LOSARTAN POTASSIUM [Concomitant]
     Route: 048

REACTIONS (4)
  - OROPHARYNGEAL PAIN [None]
  - PAIN [None]
  - SWELLING FACE [None]
  - CELLULITIS [None]
